FAERS Safety Report 6539904-2 (Version None)
Quarter: 2010Q1

REPORT INFORMATION
  Report Type: 
  Country: None (occurrence: None)
  Receive Date: 20100115
  Receipt Date: 20100105
  Transmission Date: 20100710
  Serious: Yes (Other)
  Sender: FDA-Public Use
  Company Number: US-ALLERGAN-1000100US

PATIENT
  Age: 51 Year
  Sex: Female

DRUGS (8)
  1. BOTOX COSMETIC [Suspect]
     Indication: SKIN WRINKLING
     Dosage: 84 UNITS, SINGLE
     Route: 030
     Dates: start: 20091210, end: 20091210
  2. RADIESSE [Concomitant]
     Dosage: UNK
     Dates: start: 20091206
  3. VITAMIN K TAB [Concomitant]
     Route: 061
  4. ASPIRIN [Concomitant]
  5. SYNTHROID [Concomitant]
  6. METOPROLOL [Concomitant]
  7. ZOCOR [Concomitant]
  8. LEXAPRO [Concomitant]

REACTIONS (8)
  - CONTUSION [None]
  - EYELID OEDEMA [None]
  - HOT FLUSH [None]
  - NECK PAIN [None]
  - PRURITUS [None]
  - RASH [None]
  - SWELLING [None]
  - SWELLING FACE [None]
